FAERS Safety Report 4805398-8 (Version None)
Quarter: 2005Q4

REPORT INFORMATION
  Report Type: 
  Country: None (occurrence: None)
  Receive Date: 20051017
  Receipt Date: 20051007
  Transmission Date: 20060501
  Serious: Yes (Other)
  Sender: FDA-Public Use
  Company Number: 2005US-00875

PATIENT
  Age: 57 Year
  Sex: Female

DRUGS (1)
  1. PSEUDOEPHEDRINE HCL [Suspect]
     Indication: NASAL CONGESTION
     Dosage: 60 MG

REACTIONS (2)
  - NASAL CONGESTION [None]
  - TOXIC EPIDERMAL NECROLYSIS [None]
